FAERS Safety Report 8898875 (Version 2)
Quarter: 2012Q4

REPORT INFORMATION
  Report Type: 
  Country: US (occurrence: US)
  Receive Date: 20121109
  Receipt Date: 20121123
  Transmission Date: 20130627
  Serious: Yes (Other)
  Sender: FDA-Public Use
  Company Number: US-PFIZER INC-2012279652

PATIENT
  Age: 47 Year
  Sex: Male
  Weight: 113 kg

DRUGS (4)
  1. CELEBREX [Suspect]
     Indication: SPONDYLITIS
     Dosage: 200 mg, daily
     Dates: start: 200908
  2. CELEBREX [Suspect]
     Indication: ARTHRITIS
  3. HYDROCODONE [Concomitant]
     Indication: PAIN
     Dosage: 10 mg, 3x/day
  4. MORPHINE [Concomitant]
     Indication: PAIN
     Dosage: 15 mg, 2x/day

REACTIONS (2)
  - Nephrolithiasis [Recovered/Resolved]
  - Back pain [Recovered/Resolved]
